FAERS Safety Report 8506273 (Version 2)
Quarter: 2014Q1

REPORT INFORMATION
  Report Type: Spontaneous
  Country: US (occurrence: US)
  Receive Date: 20120412
  Receipt Date: 20140123
  Transmission Date: 20141002
  Serious: Yes (Hospitalization, Other)
  Sender: FDA-Public Use
  Company Number: US-BAYER-2012-033458

PATIENT
  Age: 20 Year
  Sex: Female

DRUGS (1)
  1. YASMIN [Suspect]
     Dosage: UNK
     Dates: start: 200408, end: 200708

REACTIONS (10)
  - Gallbladder disorder [None]
  - Cholecystitis acute [None]
  - Post cholecystectomy syndrome [None]
  - Psychological trauma [None]
  - Injury [None]
  - Gallbladder pain [None]
  - Pain [None]
  - Gastrointestinal disorder [None]
  - Anxiety [None]
  - Anhedonia [None]
